FAERS Safety Report 22604517 (Version 1)
Quarter: 2023Q2

REPORT INFORMATION
  Report Type: Spontaneous
  Country: US (occurrence: US)
  Receive Date: 20230615
  Receipt Date: 20230615
  Transmission Date: 20230721
  Serious: No
  Sender: FDA-Public Use
  Company Number: US-IDORSIA-005627-2023-US

PATIENT
  Sex: Female
  Weight: 81.179 kg

DRUGS (1)
  1. QUVIVIQ [Suspect]
     Active Substance: DARIDOREXANT
     Indication: Insomnia
     Dosage: 50 MG, QD
     Route: 048
     Dates: start: 20230605

REACTIONS (5)
  - Abnormal dreams [Unknown]
  - Nightmare [Unknown]
  - Somnolence [Unknown]
  - Nausea [Unknown]
  - Insomnia [Unknown]
